FAERS Safety Report 16247150 (Version 3)
Quarter: 2019Q3

REPORT INFORMATION
  Report Type: Spontaneous
  Country: US (occurrence: US)
  Receive Date: 20190427
  Receipt Date: 20190730
  Transmission Date: 20191004
  Serious: Yes (Other)
  Sender: FDA-Public Use
  Company Number: US-009507513-1904USA012122

PATIENT
  Sex: Female

DRUGS (1)
  1. KEYTRUDA [Suspect]
     Active Substance: PEMBROLIZUMAB
     Indication: NON-SMALL CELL LUNG CANCER
     Dosage: 200 MILLIGRAM, Q3W (EVERY 3 WEEKS)
     Route: 042
     Dates: start: 201811

REACTIONS (2)
  - Cardiac tamponade [Not Recovered/Not Resolved]
  - Cortisol abnormal [Not Recovered/Not Resolved]
